FAERS Safety Report 23105432 (Version 1)
Quarter: 2023Q4

REPORT INFORMATION
  Report Type: Spontaneous
  Country: US (occurrence: None)
  Receive Date: 20231023
  Receipt Date: 20231023
  Transmission Date: 20240109
  Serious: Yes (Hospitalization)
  Sender: FDA-Public Use
  Company Number: None

PATIENT
  Age: 66 Year
  Sex: Female
  Weight: 82.5 kg

DRUGS (1)
  1. XYLOCAINE WITH EPINEPHRINE [Suspect]
     Active Substance: EPINEPHRINE BITARTRATE\LIDOCAINE HYDROCHLORIDE
     Dosage: FREQUENCY : ONCE;?
     Dates: start: 20230426, end: 20230426

REACTIONS (4)
  - Bradycardia [None]
  - Hypertension [None]
  - Hypotension [None]
  - Haemodynamic instability [None]

NARRATIVE: CASE EVENT DATE: 20230426
